FAERS Safety Report 17732606 (Version 4)
Quarter: 2023Q4

REPORT INFORMATION
  Report Type: Spontaneous
  Country: US (occurrence: None)
  Receive Date: 20200501
  Receipt Date: 20231023
  Transmission Date: 20240110
  Serious: Yes (Death, Other)
  Sender: FDA-Public Use
  Company Number: 2020SE56654

PATIENT
  Age: 30335 Day
  Sex: Female

DRUGS (31)
  1. NEXIUM [Suspect]
     Active Substance: ESOMEPRAZOLE MAGNESIUM
     Indication: Gastrooesophageal reflux disease
     Route: 048
     Dates: start: 199501, end: 200902
  2. NEXIUM [Suspect]
     Active Substance: ESOMEPRAZOLE MAGNESIUM
     Indication: Dyspepsia
     Route: 048
     Dates: start: 199501, end: 200902
  3. NEXIUM [Suspect]
     Active Substance: ESOMEPRAZOLE MAGNESIUM
     Indication: Gastrooesophageal reflux disease
     Dosage: TO BE PROVIDED
     Route: 048
  4. NEXIUM [Suspect]
     Active Substance: ESOMEPRAZOLE MAGNESIUM
     Indication: Dyspepsia
     Dosage: TO BE PROVIDED
     Route: 048
  5. NEXIUM [Suspect]
     Active Substance: ESOMEPRAZOLE MAGNESIUM
     Indication: Gastrooesophageal reflux disease
     Dosage: TO BE PROVIDED
     Route: 048
  6. NEXIUM [Suspect]
     Active Substance: ESOMEPRAZOLE MAGNESIUM
     Indication: Dyspepsia
     Dosage: TO BE PROVIDED
     Route: 048
  7. NEXIUM 24HR [Suspect]
     Active Substance: ESOMEPRAZOLE MAGNESIUM
     Indication: Dyspepsia
     Route: 048
     Dates: start: 2014, end: 2017
  8. NEXIUM 24HR [Suspect]
     Active Substance: ESOMEPRAZOLE MAGNESIUM
     Indication: Gastrooesophageal reflux disease
     Route: 048
     Dates: start: 2014, end: 2017
  9. PRILOSEC [Suspect]
     Active Substance: OMEPRAZOLE MAGNESIUM
     Indication: Gastrooesophageal reflux disease
     Route: 048
     Dates: start: 199501, end: 200902
  10. PRILOSEC [Suspect]
     Active Substance: OMEPRAZOLE MAGNESIUM
     Indication: Dyspepsia
     Route: 048
     Dates: start: 199501, end: 200902
  11. PRILOSEC [Suspect]
     Active Substance: OMEPRAZOLE MAGNESIUM
     Indication: Gastrooesophageal reflux disease
     Dosage: TO BE PROVIDED
     Route: 048
  12. PRILOSEC [Suspect]
     Active Substance: OMEPRAZOLE MAGNESIUM
     Indication: Dyspepsia
     Dosage: TO BE PROVIDED
     Route: 048
  13. IPRATROPIUM [Concomitant]
     Active Substance: IPRATROPIUM
  14. ALBUTEROL [Concomitant]
     Active Substance: ALBUTEROL
  15. FERROUS SULFATE [Concomitant]
     Active Substance: FERROUS SULFATE
  16. PLAVIX [Concomitant]
     Active Substance: CLOPIDOGREL BISULFATE
  17. CARVEDILOL [Concomitant]
     Active Substance: CARVEDILOL
  18. NASTURTIUM OFFICINALE/SODIUM SULFATE/MYOSOTIS ARVENSIS/GERANIUM ROBERT [Concomitant]
  19. NOVOLOG [Concomitant]
     Active Substance: INSULIN ASPART
  20. ZOFRAN [Concomitant]
     Active Substance: ONDANSETRON HYDROCHLORIDE
  21. FAMOTIDINE [Concomitant]
     Active Substance: FAMOTIDINE
  22. VITAMINS [Concomitant]
     Active Substance: VITAMINS
  23. RANOLAZINE [Concomitant]
     Active Substance: RANOLAZINE
  24. CRESTOR [Concomitant]
     Active Substance: ROSUVASTATIN CALCIUM
  25. ISOSORBIDE [Concomitant]
     Active Substance: ISOSORBIDE
  26. ASPIRIN [Concomitant]
     Active Substance: ASPIRIN
  27. VALSARTAN [Concomitant]
     Active Substance: VALSARTAN
  28. VITAMIN D3 [Concomitant]
     Active Substance: CHOLECALCIFEROL
  29. TORSEMIDE [Concomitant]
     Active Substance: TORSEMIDE
  30. PANCRELIPASE [Concomitant]
     Active Substance: PANCRELIPASE
  31. ACETYLCYSTEINE/ARGININE/LACTOBACILLUS ACIDOPHILUS/VITIS VINIFERA/CALCI [Concomitant]

REACTIONS (8)
  - Cardiac failure [Fatal]
  - Respiratory failure [Fatal]
  - Renal failure [Fatal]
  - Acute kidney injury [Unknown]
  - Chronic kidney disease [Unknown]
  - End stage renal disease [Unknown]
  - Nephrogenic anaemia [Unknown]
  - Renal injury [Unknown]

NARRATIVE: CASE EVENT DATE: 20170619
